FAERS Safety Report 11796238 (Version 1)
Quarter: 2015Q4

REPORT INFORMATION
  Report Type: Spontaneous
  Country: KR (occurrence: KR)
  Receive Date: 20151203
  Receipt Date: 20151203
  Transmission Date: 20160305
  Serious: Yes (Hospitalization, Other)
  Sender: FDA-Public Use
  Company Number: KR-ACTAVIS-2015-26018

PATIENT
  Age: 7 Month
  Sex: Female

DRUGS (2)
  1. IBUPROFEN (UNKNOWN) [Suspect]
     Active Substance: IBUPROFEN
     Dosage: 10 MG/KG, SINGLE
     Route: 065
  2. IBUPROFEN (UNKNOWN) [Suspect]
     Active Substance: IBUPROFEN
     Indication: PYREXIA
     Dosage: CONVENTIONAL PEDIATRIC DOSES (MAXIMUM OF 30 MG/KG/DAY)
     Route: 065

REACTIONS (2)
  - Vanishing bile duct syndrome [Recovered/Resolved]
  - Toxic epidermal necrolysis [Recovered/Resolved]
